FAERS Safety Report 6499644-5 (Version None)
Quarter: 2009Q4

REPORT INFORMATION
  Report Type: 
  Country: None (occurrence: None)
  Receive Date: 20091209
  Receipt Date: 20080729
  Transmission Date: 20100525
  Serious: No
  Sender: FDA-Public Use
  Company Number: M2008-014A

PATIENT
  Age: 36 Year
  Sex: Male

DRUGS (1)
  1. PMG 3 GRASS MIX M2008-014A-1 STD NGLY 10,000 BAU HOLLIST-STIER [Suspect]
     Indication: HYPERSENSITIVITY
     Dosage: 0.3 ML INJECTION 5TH DOSE

REACTIONS (1)
  - OEDEMA PERIPHERAL [None]
